FAERS Safety Report 5304464-0 (Version None)
Quarter: 2007Q2

REPORT INFORMATION
  Report Type: 
  Country: None (occurrence: None)
  Receive Date: 20070423
  Receipt Date: 20070412
  Transmission Date: 20071010
  Serious: Yes (Other)
  Sender: FDA-Public Use
  Company Number: US-BRISTOL-MYERS SQUIBB COMPANY-13754775

PATIENT
  Sex: Male

DRUGS (12)
  1. PRINIVIL [Suspect]
     Indication: HYPERTENSION
     Route: 048
  2. POTASSIUM CHLORIDE [Suspect]
     Indication: HYPOKALAEMIA
     Route: 048
  3. ACETAMINOPHEN [Concomitant]
  4. ASPIRIN [Concomitant]
  5. DOCUSATE SODIUM [Concomitant]
  6. FELODIPINE [Concomitant]
  7. GLYBURIDE [Concomitant]
  8. HYDROCHLOROTHIAZIDE [Concomitant]
  9. INSULIN [Concomitant]
  10. METOPROLOL SUCCINATE [Concomitant]
  11. OMEPRAZOLE [Concomitant]
  12. SENNA [Concomitant]

REACTIONS (1)
  - HYPERKALAEMIA [None]
